FAERS Safety Report 17452560 (Version 5)
Quarter: 2020Q2

REPORT INFORMATION
  Report Type: Report from Study
  Country: IT (occurrence: IT)
  Receive Date: 20200224
  Receipt Date: 20200423
  Transmission Date: 20200713
  Serious: Yes (Disabling, Other)
  Sender: FDA-Public Use
  Company Number: IT-AMGEN-ITANI2020028710

PATIENT
  Sex: Female

DRUGS (2)
  1. BLINATUMOMAB [Suspect]
     Active Substance: BLINATUMOMAB
     Dosage: 28 MILLIGRAM, QD  (FOR 4 WEEKS)
     Route: 042
     Dates: start: 20191217, end: 20200114
  2. BLINATUMOMAB [Suspect]
     Active Substance: BLINATUMOMAB
     Indication: B PRECURSOR TYPE ACUTE LEUKAEMIA
     Dosage: 28 MILLIGRAM, QD  (FOR 4 WEEKS)
     Route: 042
     Dates: start: 20191105, end: 20191203

REACTIONS (2)
  - Arthralgia [Not Recovered/Not Resolved]
  - Therapy non-responder [Unknown]
